FAERS Safety Report 7449532-2 (Version None)
Quarter: 2011Q2

REPORT INFORMATION
  Report Type: 
  Country: None (occurrence: None)
  Receive Date: 20110502
  Receipt Date: 20110406
  Transmission Date: 20111010
  Serious: Yes (Other)
  Sender: FDA-Public Use
  Company Number: US-BAYER-2011-031405

PATIENT
  Age: 61 Year
  Sex: Female
  Weight: 77 kg

DRUGS (7)
  1. FISH OIL [Concomitant]
  2. MULTI-VITAMINS [Concomitant]
     Dosage: UNK
  3. PREMARIN [Concomitant]
     Dosage: UNK
  4. ALEVE (CAPLET) [Suspect]
     Indication: HEADACHE
     Dosage: UNK UNK, PRN
     Route: 048
     Dates: start: 20110406, end: 20110406
  5. CALCIUM [Concomitant]
     Dosage: UNK
  6. VITAMIN D [Concomitant]
  7. SYNTHROID [Concomitant]
     Dosage: UNK
     Route: 048

REACTIONS (6)
  - HYPERSENSITIVITY [None]
  - DYSPHAGIA [None]
  - ORAL PRURITUS [None]
  - RASH ERYTHEMATOUS [None]
  - DYSPNOEA [None]
  - PRURITUS [None]
